FAERS Safety Report 24058742 (Version 1)
Quarter: 2024Q3

REPORT INFORMATION
  Report Type: Spontaneous
  Country: US (occurrence: US)
  Receive Date: 20240708
  Receipt Date: 20240708
  Transmission Date: 20241016
  Serious: Yes (Other)
  Sender: AUROBINDO
  Company Number: US-MLMSERVICE-20240627-PI109357-00232-4

PATIENT
  Age: 74 Year
  Sex: Male

DRUGS (2)
  1. MYCOPHENOLIC ACID [Suspect]
     Active Substance: MYCOPHENOLIC ACID
     Indication: Immunosuppressant drug therapy
     Dosage: UNK
     Route: 065
  2. TACROLIMUS [Suspect]
     Active Substance: TACROLIMUS
     Indication: Immunosuppressant drug therapy
     Dosage: UNK
     Route: 065

REACTIONS (7)
  - Malignant pleural effusion [Recovered/Resolved]
  - B-cell lymphoma [Unknown]
  - Central nervous system lymphoma [Unknown]
  - Ocular lymphoma [Recovered/Resolved]
  - Diffuse large B-cell lymphoma [Unknown]
  - Pericardial effusion malignant [Recovered/Resolved]
  - Vitreous detachment [Recovered/Resolved]
